FAERS Safety Report 7576479-3 (Version None)
Quarter: 2011Q2

REPORT INFORMATION
  Report Type: 
  Country: None (occurrence: None)
  Receive Date: 20110628
  Receipt Date: 20080529
  Transmission Date: 20111010
  Serious: Yes (Other)
  Sender: FDA-Public Use
  Company Number: US-BAYER-201039270NA

PATIENT
  Age: 72 Year
  Sex: Male
  Weight: 79 kg

DRUGS (17)
  1. TRASYLOL [Suspect]
     Dosage: 200CC LOAD
     Route: 042
     Dates: start: 20060527, end: 20060527
  2. NAPROXEN [Concomitant]
     Indication: PAIN
     Dosage: UNK
     Route: 048
     Dates: start: 19930101, end: 20040101
  3. PROPOFOL [Concomitant]
     Dosage: UNK
     Route: 042
     Dates: start: 20060527, end: 20060527
  4. CELEBREX [Concomitant]
     Indication: PAIN
     Dosage: UNK
     Route: 048
     Dates: start: 19990101
  5. DARVOCET [Concomitant]
     Indication: PAIN
     Dosage: UNK
     Dates: start: 19930101
  6. VERSED [Concomitant]
     Dosage: UNK
     Route: 042
     Dates: start: 20060527, end: 20060527
  7. INSULIN [Concomitant]
     Dosage: 8 UNITS
     Route: 042
     Dates: start: 20060527, end: 20060527
  8. SINGULAIR [Concomitant]
     Route: 048
  9. FENTANYL [Concomitant]
     Dosage: UNK
     Route: 048
     Dates: start: 20060527, end: 20060527
  10. MAGNESIUM SULFATE [Concomitant]
     Dosage: UNK
     Route: 042
     Dates: start: 20060527, end: 20060527
  11. TRASYLOL [Suspect]
     Indication: CORONARY ARTERY BYPASS
     Dosage: 1 ML INITIAL DOSE
     Route: 042
     Dates: start: 20060527, end: 20060527
  12. TRASYLOL [Suspect]
     Dosage: 25CC PER HOUR IV DRIP
     Dates: start: 20060527, end: 20060527
  13. LORATADINE [Concomitant]
     Route: 048
  14. HEPARIN [Concomitant]
     Dosage: 32,000 UNITS
     Route: 042
     Dates: start: 20060527, end: 20060527
  15. ASPIRIN [Concomitant]
     Indication: CARDIOVASCULAR EVENT PROPHYLAXIS
     Route: 048
  16. ZITHROMAX [Concomitant]
     Indication: INFECTION
     Route: 048
  17. OMEGA-3 FATTY ACIDS [Concomitant]
     Route: 048

REACTIONS (17)
  - RENAL FAILURE [None]
  - EMOTIONAL DISTRESS [None]
  - MULTI-ORGAN FAILURE [None]
  - INJURY [None]
  - RENAL INJURY [None]
  - PULMONARY OEDEMA [None]
  - RENAL IMPAIRMENT [None]
  - CEREBROVASCULAR ACCIDENT [None]
  - UNEVALUABLE EVENT [None]
  - FEAR [None]
  - CARDIAC FAILURE CONGESTIVE [None]
  - BRONCHOSPASM [None]
  - PAIN [None]
  - HYPOXIA [None]
  - STRESS [None]
  - ATRIAL FIBRILLATION [None]
  - ANXIETY [None]
